FAERS Safety Report 19999529 (Version 1)
Quarter: 2021Q4

REPORT INFORMATION
  Report Type: Spontaneous
  Country: US (occurrence: US)
  Receive Date: 20211027
  Receipt Date: 20211027
  Transmission Date: 20220304
  Serious: Yes (Death, Hospitalization)
  Sender: FDA-Public Use
  Company Number: US-JNJFOC-20211027258

PATIENT
  Age: 27 Year
  Sex: Female
  Weight: 96.9 kg

DRUGS (4)
  1. TYLENOL [Suspect]
     Active Substance: ACETAMINOPHEN
     Indication: Nasopharyngitis
     Route: 048
  2. TYLENOL PM [Suspect]
     Active Substance: ACETAMINOPHEN\DIPHENHYDRAMINE
     Indication: Nasopharyngitis
     Route: 048
  3. VICKS DAYQUIL [Suspect]
     Active Substance: DEXTROMETHORPHAN HYDROBROMIDE\GUAIFENESIN
     Indication: Product used for unknown indication
     Route: 065
  4. VICKS VAPORUB [CAMPHOR;EUCALYPTUS GLOBULUS OIL;MENTHOL] [Concomitant]

REACTIONS (9)
  - Acute hepatic failure [Fatal]
  - Acute kidney injury [Fatal]
  - Brain death [Fatal]
  - Brain oedema [Fatal]
  - Brain herniation [Fatal]
  - Escherichia urinary tract infection [Fatal]
  - Pneumonia [Fatal]
  - Accidental overdose [Fatal]
  - Product administration error [Fatal]
